FAERS Safety Report 9201814 (Version 1)
Quarter: 2013Q2

REPORT INFORMATION
  Report Type: Spontaneous
  Country: GB (occurrence: GB)
  Receive Date: 20130401
  Receipt Date: 20130401
  Transmission Date: 20140414
  Serious: Yes (Other)
  Sender: FDA-Public Use
  Company Number: GB-ROCHE-1184437

PATIENT
  Sex: Female

DRUGS (4)
  1. LUCENTIS [Suspect]
     Indication: AGE-RELATED MACULAR DEGENERATION
     Route: 050
     Dates: start: 20130110
  2. LUCENTIS [Suspect]
     Route: 050
     Dates: start: 20130110
  3. WARFARIN [Concomitant]
  4. POVIDONE-IODINE [Concomitant]

REACTIONS (2)
  - Endophthalmitis [Recovering/Resolving]
  - Cataract [Unknown]
